FAERS Safety Report 19799678 (Version 1)
Quarter: 2021Q3

REPORT INFORMATION
  Report Type: Spontaneous
  Country: GB (occurrence: GB)
  Receive Date: 20210907
  Receipt Date: 20210907
  Transmission Date: 20211014
  Serious: Yes (Other)
  Sender: FDA-Public Use
  Company Number: GB-TAKEDA-2021TJP083873

PATIENT
  Age: 65 Year
  Sex: Female
  Weight: 63.5 kg

DRUGS (2)
  1. LANSOPRAZOLE. [Suspect]
     Active Substance: LANSOPRAZOLE
     Indication: GASTROOESOPHAGEAL REFLUX DISEASE
     Dosage: UNK, DAILY
     Route: 048
     Dates: start: 20180224, end: 20210815
  2. FAMOTIDINE. [Concomitant]
     Active Substance: FAMOTIDINE
     Indication: ILL-DEFINED DISORDER
     Dosage: UNK

REACTIONS (4)
  - Arthralgia [Not Recovered/Not Resolved]
  - Loss of personal independence in daily activities [Unknown]
  - Pain in extremity [Unknown]
  - Osteoarthritis [Not Recovered/Not Resolved]

NARRATIVE: CASE EVENT DATE: 20210508
